FAERS Safety Report 6760399-8 (Version None)
Quarter: 2010Q2

REPORT INFORMATION
  Report Type: 
  Country: None (occurrence: None)
  Receive Date: 20100608
  Receipt Date: 20100525
  Transmission Date: 20101027
  Serious: Yes (Hospitalization)
  Sender: FDA-Public Use
  Company Number: DE-WATSON-2010-06118

PATIENT

DRUGS (6)
  1. METFORMIN HCL [Suspect]
     Indication: TYPE 2 DIABETES MELLITUS
     Dosage: 1 G, BID FOR MANY YEARS
     Route: 048
     Dates: end: 20090421
  2. BYETTA [Suspect]
     Indication: TYPE 2 DIABETES MELLITUS
     Dosage: 5 MCG, BID
     Route: 058
     Dates: start: 20090303, end: 20090420
  3. FLUVASTATIN [Suspect]
     Indication: HYPERCHOLESTEROLAEMIA
     Dosage: 80 MG, DAILY
     Route: 048
     Dates: start: 20090303, end: 20090421
  4. BISOPROLOL [Suspect]
     Indication: HYPERTENSION
     Dosage: 2 1/2 MG, DAILY
     Route: 048
  5. HYDROCHLOROTHIAZIDE [Concomitant]
     Indication: HYPERTENSION
     Dosage: 25 MG, DAILY
     Route: 048
     Dates: start: 20090303
  6. CARMEN [Concomitant]
     Indication: HYPERTENSION
     Dosage: 10 MG, BID  FOR MANY YEARS
     Route: 048

REACTIONS (2)
  - TRANSAMINASES INCREASED [None]
  - VOMITING [None]
